FAERS Safety Report 9697039 (Version 1)
Quarter: 2013Q4

REPORT INFORMATION
  Report Type: Spontaneous
  Country: FR (occurrence: FR)
  Receive Date: 20131120
  Receipt Date: 20131120
  Transmission Date: 20140711
  Serious: Yes (Hospitalization)
  Sender: FDA-Public Use
  Company Number: FR-PFIZER INC-2013326117

PATIENT
  Age: 79 Year
  Sex: Male

DRUGS (5)
  1. TRAMADOL HCL [Suspect]
     Indication: PAIN
     Dosage: 150 MG, 2X/DAY
     Route: 048
     Dates: start: 20130906, end: 20130910
  2. NEURONTIN [Suspect]
     Indication: PAIN
     Dosage: 300 MG, 3X/DAY
     Route: 048
     Dates: start: 20130827, end: 20130910
  3. NOZINAN [Suspect]
     Indication: DEPRESSION
     Dosage: 25 MG, 1X/DAY
     Route: 048
     Dates: start: 1997
  4. DAFALGAN CODEINE [Suspect]
     Indication: PAIN
     Dosage: 1 DF, 4X/DAY
     Route: 048
     Dates: start: 20130827, end: 20130906
  5. ZELITREX [Concomitant]
     Indication: HERPES ZOSTER
     Dosage: UNK
     Dates: start: 20130827, end: 20130903

REACTIONS (3)
  - Rhabdomyolysis [Recovered/Resolved]
  - Fall [Unknown]
  - Muscular weakness [Unknown]
